FAERS Safety Report 11753701 (Version 2)
Quarter: 2016Q1

REPORT INFORMATION
  Report Type: Spontaneous
  Country: US (occurrence: US)
  Receive Date: 20151119
  Receipt Date: 20160119
  Transmission Date: 20160525
  Serious: No
  Sender: FDA-Public Use
  Company Number: US-PFIZER INC-2015386360

PATIENT
  Age: 30 Year
  Sex: Female
  Weight: 91 kg

DRUGS (2)
  1. ADVIL [Suspect]
     Active Substance: IBUPROFEN
     Indication: NASOPHARYNGITIS
     Dosage: 400 MG (2 TABLETS)
  2. ADVIL [Suspect]
     Active Substance: IBUPROFEN
     Dosage: 600 MG (3 TABLETS)
     Dates: start: 20151109, end: 20151109

REACTIONS (4)
  - Intentional product use issue [Unknown]
  - Malaise [Unknown]
  - Headache [Unknown]
  - Intentional product use issue [Unknown]

NARRATIVE: CASE EVENT DATE: 20151109
